FAERS Safety Report 8503791-3 (Version None)
Quarter: 2012Q3

REPORT INFORMATION
  Report Type: 
  Country: None (occurrence: None)
  Receive Date: 20120711
  Receipt Date: 20120705
  Transmission Date: 20120928
  Serious: Yes (Hospitalization, Other)
  Sender: FDA-Public Use
  Company Number: CA-SANOFI-AVENTIS-2012SA048229

PATIENT
  Age: 62 Year
  Sex: Female
  Weight: 95 kg

DRUGS (5)
  1. VENLAFAXINE [Concomitant]
     Route: 048
  2. GRANISETRON [Concomitant]
     Route: 048
  3. TAXOTERE [Suspect]
     Route: 042
  4. DEXAMETHASONE [Concomitant]
     Route: 048
  5. PERCOCET [Concomitant]
     Route: 048

REACTIONS (5)
  - COUGH [None]
  - BRONCHOSCOPY ABNORMAL [None]
  - DYSPNOEA [None]
  - PNEUMONIA [None]
  - LUNG INFILTRATION [None]
